FAERS Safety Report 8585529-7 (Version None)
Quarter: 2012Q3

REPORT INFORMATION
  Report Type: 
  Country: None (occurrence: None)
  Receive Date: 20120810
  Receipt Date: 20120806
  Transmission Date: 20120928
  Serious: Yes (Death, Other)
  Sender: FDA-Public Use
  Company Number: JP-ELI_LILLY_AND_COMPANY-JP201208001685

PATIENT
  Age: 59 Year

DRUGS (4)
  1. VITAMIN B12                        /00056201/ [Concomitant]
  2. FOLIC ACID [Concomitant]
  3. ALIMTA [Suspect]
     Indication: LUNG NEOPLASM MALIGNANT
     Dosage: 500 MG/M2, UNK
     Route: 042
     Dates: start: 20120723
  4. CARBOPLATIN [Concomitant]
     Indication: LUNG NEOPLASM MALIGNANT
     Dosage: UNK
     Route: 042
     Dates: start: 20120723

REACTIONS (3)
  - DIARRHOEA [None]
  - AGRANULOCYTOSIS [None]
  - RENAL FAILURE [None]
